FAERS Safety Report 4347537-1 (Version None)
Quarter: 2004Q2

REPORT INFORMATION
  Report Type: 
  Country: None (occurrence: None)
  Receive Date: 20040426
  Receipt Date: 20040426
  Transmission Date: 20050107
  Serious: Yes (Other)
  Sender: FDA-Public Use
  Company Number: None

PATIENT
  Age: 62 Year
  Sex: Female
  Weight: 60.782 kg

DRUGS (4)
  1. VIACOM NASAL GEL ZICAM LLC, PHOENIX [Suspect]
     Indication: NASOPHARYNGITIS
     Dosage: PER LABEL NASAL
     Route: 045
     Dates: start: 20030315, end: 20030325
  2. SYNTHROID [Concomitant]
  3. SERZONE [Concomitant]
  4. IMITREX [Concomitant]

REACTIONS (2)
  - PAROSMIA [None]
  - SINUSITIS [None]
